FAERS Safety Report 9567277 (Version 1)
Quarter: 2013Q3

REPORT INFORMATION
  Report Type: Spontaneous
  Country: US (occurrence: US)
  Receive Date: 20130930
  Receipt Date: 20130930
  Transmission Date: 20140515
  Serious: No
  Sender: FDA-Public Use
  Company Number: US-AMGEN-USASP2012061981

PATIENT
  Sex: Female
  Weight: 77.1 kg

DRUGS (13)
  1. ENBREL [Suspect]
     Indication: PSORIATIC ARTHROPATHY
     Dosage: 25 MG, UNK  EVERY OTHER WEEK
     Route: 058
  2. AGGRENOX [Concomitant]
     Dosage: 25-200 MG, UNK
  3. CLONIDINE [Concomitant]
     Dosage: 0.1 MG, UNK
  4. FLONASE [Concomitant]
     Dosage: 0.05 %, SPR UNK
  5. PROAIR HFA [Concomitant]
     Dosage: AER UNK
  6. SPIRIVA [Concomitant]
     Dosage: UNK
  7. FLOVENT [Concomitant]
     Dosage: SINGULAIR 10 MG TAB 44 MCG AC AER UNK, UNK
  8. OMEPRAZOLE [Concomitant]
     Dosage: 20 MG, UNK
  9. CALCIUM D                          /00944201/ [Concomitant]
     Dosage: UNK
  10. MULTIVITAMIN                       /00097801/ [Concomitant]
  11. ALEVE [Concomitant]
     Dosage: 220 MG, UNK
  12. FLUCONAZOLE [Concomitant]
     Dosage: 50 MG, UNK
  13. SIMVASTATIN [Concomitant]
     Dosage: 5 MG, UNK

REACTIONS (2)
  - Oral candidiasis [Unknown]
  - Stomatitis [Unknown]
